FAERS Safety Report 18974841 (Version 4)
Quarter: 2021Q2

REPORT INFORMATION
  Report Type: Report from Study
  Country: US (occurrence: US)
  Receive Date: 20210305
  Receipt Date: 20210419
  Transmission Date: 20210717
  Serious: Yes (Hospitalization)
  Sender: FDA-Public Use
  Company Number: US-PFIZER INC-2021201113

PATIENT
  Age: 38 Year
  Sex: Female
  Weight: 124.3 kg

DRUGS (50)
  1. ELDERBERRY [SAMBUCUS NIGRA] [Concomitant]
     Dosage: 1 TAB, QD
     Route: 048
     Dates: start: 20200605
  2. AZITHROMYCIN ANHYDROUS. [Concomitant]
     Active Substance: AZITHROMYCIN ANHYDROUS
     Dosage: 250 MG, QD
     Route: 048
     Dates: start: 20201127
  3. GARLIC [ALLIUM SATIVUM] [Concomitant]
     Active Substance: GARLIC
     Indication: SUPPLEMENTATION THERAPY
     Dosage: 1 TAB, QD
     Route: 048
     Dates: start: 202004
  4. PREDNISOLONE. [Concomitant]
     Active Substance: PREDNISOLONE
     Indication: EYE ALLERGY
     Dosage: 1 GTTS, BID
     Dates: start: 20201120
  5. PREDNISOLONE. [Concomitant]
     Active Substance: PREDNISOLONE
     Indication: VISION BLURRED
     Dosage: 1 GTTS, BID
     Dates: start: 20201127
  6. ELDERBERRY [SAMBUCUS NIGRA] [Concomitant]
     Dosage: 1 TAB, QD
     Route: 048
     Dates: start: 20200904
  7. DEPO?PROVERA [Concomitant]
     Active Substance: MEDROXYPROGESTERONE ACETATE
     Dosage: 150 MG, OT: Q 3 MONTHS (OT: OTHER)
     Route: 030
     Dates: start: 20200605
  8. VITAMIN C [Concomitant]
     Active Substance: ASCORBIC ACID
     Dosage: 25 MG, QD
     Route: 048
     Dates: start: 20200221
  9. IBUPROFEN. [Concomitant]
     Active Substance: IBUPROFEN
     Dosage: 200 MG, PRN
     Route: 048
     Dates: start: 20201127
  10. AZITHROMYCIN ANHYDROUS. [Concomitant]
     Active Substance: AZITHROMYCIN ANHYDROUS
     Dosage: 250 MG, QD
     Route: 048
     Dates: start: 20200327
  11. IMODIUM [Concomitant]
     Active Substance: LOPERAMIDE HYDROCHLORIDE
     Indication: DIARRHOEA
     Dosage: 1 TAB, PRN
     Route: 048
     Dates: start: 20200605
  12. OLOPATADINE. [Concomitant]
     Active Substance: OLOPATADINE
     Indication: EYE ALLERGY
     Dosage: 1 GGTS, BID
     Dates: start: 20201120
  13. ELDERBERRY [SAMBUCUS NIGRA] [Concomitant]
     Dosage: 1 TAB, QD
     Route: 048
     Dates: start: 20201127
  14. DEPO?PROVERA [Concomitant]
     Active Substance: MEDROXYPROGESTERONE ACETATE
     Dosage: 150 MG, OT: Q 3 MONTHS (OT: OTHER)
     Route: 030
     Dates: start: 20201127
  15. MELATONIN [Concomitant]
     Active Substance: MELATONIN
     Dosage: 5 MG, HS
     Route: 048
     Dates: start: 20200904
  16. VITAMIN C [Concomitant]
     Active Substance: ASCORBIC ACID
     Dosage: 25 MG, QD
     Route: 048
     Dates: start: 20200327
  17. GARLIC [ALLIUM SATIVUM] [Concomitant]
     Active Substance: GARLIC
     Dosage: 1 TAB, QD
     Route: 048
     Dates: start: 20200904
  18. IMODIUM [Concomitant]
     Active Substance: LOPERAMIDE HYDROCHLORIDE
     Dosage: 1 TAB, PRN
     Route: 048
     Dates: start: 20200904
  19. ZOFRAN [Concomitant]
     Active Substance: ONDANSETRON HYDROCHLORIDE
     Dosage: 8 MG, HS
     Route: 048
     Dates: start: 20200904
  20. OLOPATADINE. [Concomitant]
     Active Substance: OLOPATADINE
     Indication: VISION BLURRED
     Dosage: 1 GGTS, BID
     Dates: start: 20201127
  21. DEPO?PROVERA [Concomitant]
     Active Substance: MEDROXYPROGESTERONE ACETATE
     Indication: CONTRACEPTION
     Dosage: 150 MG, OT: Q 3 MONTHS (OT: OTHER)
     Route: 030
     Dates: start: 201508
  22. DEPO?PROVERA [Concomitant]
     Active Substance: MEDROXYPROGESTERONE ACETATE
     Dosage: 150 MG, OT: Q 3 MONTHS (OT: OTHER)
     Route: 030
     Dates: start: 20200904
  23. MELATONIN [Concomitant]
     Active Substance: MELATONIN
     Dosage: 5 MG, HS
     Route: 048
     Dates: start: 20200221
  24. VITAMIN C [Concomitant]
     Active Substance: ASCORBIC ACID
     Dosage: 25 MG, QD
     Route: 048
     Dates: start: 20200605
  25. VITAMIN C [Concomitant]
     Active Substance: ASCORBIC ACID
     Dosage: 25 MG, QD
     Route: 048
     Dates: start: 20200904
  26. VITAMIN C [Concomitant]
     Active Substance: ASCORBIC ACID
     Dosage: 25 MG, QD
     Route: 048
     Dates: start: 20201127
  27. IBUPROFEN. [Concomitant]
     Active Substance: IBUPROFEN
     Dosage: 200 MG, PRN
     Route: 048
     Dates: start: 20200221
  28. IBUPROFEN. [Concomitant]
     Active Substance: IBUPROFEN
     Dosage: 200 MG, PRN
     Route: 048
     Dates: start: 20200327
  29. AZITHROMYCIN ANHYDROUS. [Concomitant]
     Active Substance: AZITHROMYCIN ANHYDROUS
     Indication: PNEUMONIA
     Dosage: 250 MG, QD
     Route: 048
     Dates: start: 20200327, end: 20200331
  30. AZITHROMYCIN ANHYDROUS. [Concomitant]
     Active Substance: AZITHROMYCIN ANHYDROUS
     Dosage: 250 MG, QD
     Route: 048
     Dates: start: 20200904
  31. ELDERBERRY [SAMBUCUS NIGRA] [Concomitant]
     Dosage: 1 TAB, QD
     Route: 048
     Dates: start: 20200221
  32. MELATONIN [Concomitant]
     Active Substance: MELATONIN
     Indication: INSOMNIA
     Dosage: 5 MG, HS
     Route: 048
     Dates: start: 202001
  33. ZOFRAN [Concomitant]
     Active Substance: ONDANSETRON HYDROCHLORIDE
     Dosage: 8 MG, HS
     Route: 048
     Dates: start: 20201127
  34. DEPO?PROVERA [Concomitant]
     Active Substance: MEDROXYPROGESTERONE ACETATE
     Dosage: 150 MG, OT: Q 3 MONTHS (OT: OTHER)
     Route: 030
     Dates: start: 20200327
  35. MELATONIN [Concomitant]
     Active Substance: MELATONIN
     Dosage: 5 MG, HS
     Route: 048
     Dates: start: 20200605
  36. GARLIC [ALLIUM SATIVUM] [Concomitant]
     Active Substance: GARLIC
     Dosage: 1 TAB, QD
     Route: 048
     Dates: start: 20201127
  37. ZOFRAN [Concomitant]
     Active Substance: ONDANSETRON HYDROCHLORIDE
     Indication: NAUSEA
     Dosage: 8 MG, HS
     Route: 048
     Dates: start: 20200818
  38. ELDERBERRY [SAMBUCUS NIGRA] [Concomitant]
     Indication: SUPPLEMENTATION THERAPY
     Dosage: 1 TAB, QD
     Route: 048
     Dates: start: 202001
  39. IBUPROFEN. [Concomitant]
     Active Substance: IBUPROFEN
     Indication: HEADACHE
     Dosage: 200 MG, PRN
     Route: 048
     Dates: start: 2000
  40. DEPO?PROVERA [Concomitant]
     Active Substance: MEDROXYPROGESTERONE ACETATE
     Dosage: 150 MG, OT: Q 3 MONTHS (OT: OTHER)
     Route: 030
     Dates: start: 20200221
  41. MELATONIN [Concomitant]
     Active Substance: MELATONIN
     Dosage: 5 MG, HS
     Route: 048
     Dates: start: 20200327
  42. MELATONIN [Concomitant]
     Active Substance: MELATONIN
     Dosage: 5 MG, HS
     Route: 048
     Dates: start: 20201127
  43. VITAMIN C [Concomitant]
     Active Substance: ASCORBIC ACID
     Indication: SUPPLEMENTATION THERAPY
     Dosage: 25 MG, QD
     Route: 048
     Dates: start: 202001
  44. IBUPROFEN. [Concomitant]
     Active Substance: IBUPROFEN
     Dosage: 200 MG, PRN
     Route: 048
     Dates: start: 20200605
  45. IBUPROFEN. [Concomitant]
     Active Substance: IBUPROFEN
     Dosage: 200 MG, PRN
     Route: 048
     Dates: start: 20200904
  46. AZITHROMYCIN ANHYDROUS. [Concomitant]
     Active Substance: AZITHROMYCIN ANHYDROUS
     Dosage: 250 MG, QD
     Route: 048
     Dates: start: 20200605
  47. GARLIC [ALLIUM SATIVUM] [Concomitant]
     Active Substance: GARLIC
     Dosage: 1 TAB, QD
     Route: 048
     Dates: start: 20200605
  48. IMODIUM [Concomitant]
     Active Substance: LOPERAMIDE HYDROCHLORIDE
     Dosage: 1 TAB, PRN
     Route: 048
     Dates: start: 20201127
  49. SUTENT [Suspect]
     Active Substance: SUNITINIB MALATE
     Indication: UVEAL MELANOMA
     Dosage: 25 MG, QD
     Route: 048
     Dates: start: 20200222, end: 20210215
  50. ELDERBERRY [SAMBUCUS NIGRA] [Concomitant]
     Dosage: 1 TAB, QD
     Route: 048
     Dates: start: 20200327

REACTIONS (1)
  - Heavy menstrual bleeding [Recovered/Resolved]

NARRATIVE: CASE EVENT DATE: 20210206
